FAERS Safety Report 6312336-8 (Version None)
Quarter: 2009Q3

REPORT INFORMATION
  Report Type: 
  Country: None (occurrence: None)
  Receive Date: 20090817
  Receipt Date: 20090810
  Transmission Date: 20100115
  Serious: Yes (Hospitalization, Other)
  Sender: FDA-Public Use
  Company Number: PHHY2009SE33554

PATIENT
  Sex: Male

DRUGS (7)
  1. TEGRETOL [Suspect]
     Indication: EPILEPSY
     Dosage: 200 MG, UNK
     Route: 048
     Dates: start: 20081230, end: 20090223
  2. EFFEXOR [Concomitant]
  3. ZOLPIDEM [Concomitant]
  4. RISPERDAL [Concomitant]
  5. ATARAX [Concomitant]
  6. LYRICA [Concomitant]
  7. BUSPIRONE HCL [Concomitant]

REACTIONS (12)
  - ANTICONVULSANT DRUG LEVEL ABOVE THERAPEUTIC [None]
  - ASCITES [None]
  - BLOOD CREATINE INCREASED [None]
  - DIALYSIS [None]
  - DRUG RASH WITH EOSINOPHILIA AND SYSTEMIC SYMPTOMS [None]
  - GENERAL PHYSICAL HEALTH DETERIORATION [None]
  - MALAISE [None]
  - PYREXIA [None]
  - RASH [None]
  - RENAL FAILURE [None]
  - RENAL TUBULAR NECROSIS [None]
  - UROSEPSIS [None]
